FAERS Safety Report 12372470 (Version 1)
Quarter: 2016Q2

REPORT INFORMATION
  Report Type: Spontaneous
  Country: US (occurrence: US)
  Receive Date: 20160516
  Receipt Date: 20160516
  Transmission Date: 20160815
  Serious: Yes (Other)
  Sender: FDA-Public Use
  Company Number: US-OTSUKA-2016_010441

PATIENT
  Sex: Male

DRUGS (3)
  1. PLETAL [Suspect]
     Active Substance: CILOSTAZOL
     Dosage: UNK
     Route: 065
     Dates: start: 2008, end: 2010
  2. PLETAL [Suspect]
     Active Substance: CILOSTAZOL
     Indication: PERIPHERAL ARTERIAL OCCLUSIVE DISEASE
     Dosage: 100 MG, BID
     Route: 065
     Dates: start: 2010
  3. PLETAL [Suspect]
     Active Substance: CILOSTAZOL
     Dosage: 100 MG, BID
     Route: 065

REACTIONS (1)
  - Hydrocele [Unknown]

NARRATIVE: CASE EVENT DATE: 2014
